FAERS Safety Report 6518503-2 (Version None)
Quarter: 2009Q4

REPORT INFORMATION
  Report Type: 
  Country: None (occurrence: None)
  Receive Date: 20091226
  Receipt Date: 20091216
  Transmission Date: 20100525
  Serious: Yes (Hospitalization, Other)
  Sender: FDA-Public Use
  Company Number: US-JNJFOC-20091205449

PATIENT
  Age: 79 Year
  Sex: Female

DRUGS (11)
  1. TYLENOL W/ CODEINE [Suspect]
     Indication: FIBROMYALGIA
     Route: 065
  2. AMITRIPTYLINE [Interacting]
     Indication: DEPRESSION
     Route: 065
  3. SAVELLA [Suspect]
     Indication: FIBROMYALGIA
     Route: 048
  4. SAVELLA [Suspect]
     Route: 048
  5. SAVELLA [Suspect]
     Route: 048
  6. SAVELLA [Suspect]
     Route: 048
  7. LIPITOR [Concomitant]
     Indication: BLOOD CHOLESTEROL INCREASED
  8. METOPROLOL TARTRATE [Concomitant]
     Indication: HYPERTENSION
  9. ZETIA [Concomitant]
     Indication: BLOOD CHOLESTEROL INCREASED
  10. ATIVAN [Concomitant]
     Indication: ANXIETY
  11. NORVASC [Concomitant]
     Indication: HYPERTENSION

REACTIONS (2)
  - DRUG INTERACTION [None]
  - MENTAL STATUS CHANGES [None]
